FAERS Safety Report 6659658-9 (Version None)
Quarter: 2010Q1

REPORT INFORMATION
  Report Type: 
  Country: None (occurrence: None)
  Receive Date: 20100325
  Receipt Date: 20100315
  Transmission Date: 20100710
  Serious: Yes (Hospitalization)
  Sender: FDA-Public Use
  Company Number: TCI2010A00976

PATIENT
  Sex: Male

DRUGS (4)
  1. ACTOS [Suspect]
     Indication: TYPE 2 DIABETES MELLITUS
     Dosage: (1 IN 1 D), PER ORAL
     Route: 048
  2. LANSORAL (LANSOPRAZOLE) [Concomitant]
  3. OMEPRAZOLE [Concomitant]
  4. PLETAL [Concomitant]

REACTIONS (5)
  - GASTRIC CANCER [None]
  - LYMPHADENOPATHY [None]
  - MALIGNANT ASCITES [None]
  - METASTASES TO PERITONEUM [None]
  - PYLORIC STENOSIS [None]
